FAERS Safety Report 6739572-0 (Version None)
Quarter: 2010Q2

REPORT INFORMATION
  Report Type: 
  Country: None (occurrence: None)
  Receive Date: 20100525
  Receipt Date: 20100311
  Transmission Date: 20101027
  Serious: No
  Sender: FDA-Public Use
  Company Number: US-AMGEN-KDL367161

PATIENT
  Sex: Female
  Weight: 66.7 kg

DRUGS (11)
  1. NPLATE [Suspect]
     Indication: IDIOPATHIC THROMBOCYTOPENIC PURPURA
     Dates: start: 20090706, end: 20090824
  2. CORTICOSTEROIDS [Concomitant]
  3. THEOPHYLLINE [Concomitant]
  4. CRESTOR [Concomitant]
  5. ALBUTEROL [Concomitant]
  6. FOSAMAX [Concomitant]
  7. MULTI-VITAMINS [Concomitant]
  8. CALCIUM [Concomitant]
  9. BECONASE [Concomitant]
  10. ADVAIR DISKUS 100/50 [Concomitant]
  11. ALLEGRA [Concomitant]

REACTIONS (4)
  - DECREASED APPETITE [None]
  - GASTROINTESTINAL DISORDER [None]
  - NAUSEA [None]
  - WEIGHT DECREASED [None]
